FAERS Safety Report 14488160 (Version 10)
Quarter: 2019Q1

REPORT INFORMATION
  Report Type: Report from Study
  Country: IN (occurrence: IN)
  Receive Date: 20180205
  Receipt Date: 20190317
  Transmission Date: 20190417
  Serious: Yes (Hospitalization, Other)
  Sender: FDA-Public Use
  Company Number: PHHO2018IN001552

PATIENT
  Age: 64 Year
  Sex: Male
  Weight: 67 kg

DRUGS (9)
  1. LASIX [Concomitant]
     Active Substance: FUROSEMIDE
     Indication: DYSPNOEA
     Dosage: 20 MG, QD
     Route: 048
     Dates: start: 20130429
  2. PAN [Concomitant]
     Indication: GASTRITIS
     Dosage: 40 MG, UNK
     Route: 065
     Dates: start: 20180119
  3. ASPIRIN. [Concomitant]
     Active Substance: ASPIRIN
     Indication: MYOCARDIAL INFARCTION
     Dosage: 75/10, QD
     Route: 048
     Dates: start: 20130429
  4. FORACORT [Concomitant]
     Active Substance: BUDESONIDE\FORMOTEROL FUMARATE
     Indication: ASTHMA
     Dosage: 2 PUFF, BID
     Route: 055
     Dates: start: 20170119
  5. ALDACTONE [Concomitant]
     Active Substance: SPIRONOLACTONE
     Indication: DYSPNOEA
     Dosage: 25 MG, QD
     Route: 048
     Dates: start: 20111213, end: 20180123
  6. ATORVASTATIN [Concomitant]
     Active Substance: ATORVASTATIN
     Indication: DYSLIPIDAEMIA
     Dosage: 10 MG, QD
     Route: 048
     Dates: start: 20180328
  7. ACZ885 [Suspect]
     Active Substance: CANAKINUMAB
     Indication: CARDIOVASCULAR EVENT PROPHYLAXIS
     Dosage: 150 MG, UNK
     Route: 058
     Dates: end: 20170817
  8. LOSARTAN. [Concomitant]
     Active Substance: LOSARTAN
     Indication: HYPERTENSION
     Dosage: 25 MG, QD
     Route: 048
     Dates: start: 20120428
  9. WARF [Concomitant]
     Indication: ATRIAL FIBRILLATION
     Dosage: 2 MG, QD
     Route: 048
     Dates: start: 20160128

REACTIONS (5)
  - Asthma [Recovered/Resolved]
  - Chronic obstructive pulmonary disease [Recovered/Resolved]
  - Lower respiratory tract infection [Recovered/Resolved]
  - Lower respiratory tract infection [Recovered/Resolved]
  - Lower respiratory tract infection [Recovered/Resolved]

NARRATIVE: CASE EVENT DATE: 20180113
